FAERS Safety Report 8890120 (Version 1)
Quarter: 2012Q4

REPORT INFORMATION
  Report Type: Spontaneous
  Country: US (occurrence: None)
  Receive Date: 20121105
  Receipt Date: 20121105
  Transmission Date: 20130627
  Serious: Yes (Other)
  Sender: FDA-Public Use
  Company Number: None

PATIENT
  Age: 57 Year
  Sex: Male
  Weight: 89.81 kg

DRUGS (2)
  1. VIIBRYD [Suspect]
     Indication: DEPRESSION
     Dosage: 10 mg then 20 mg daily/week 1 + 2 po
     Route: 048
     Dates: start: 20120829, end: 20120926
  2. VIIBRYD [Suspect]
     Indication: DEPRESSION
     Dosage: 40 mg daily/weeks 3 + 4 po
     Route: 048

REACTIONS (2)
  - Abdominal discomfort [None]
  - Diabetes mellitus inadequate control [None]
